FAERS Safety Report 5564288-6 (Version None)
Quarter: 2007Q4

REPORT INFORMATION
  Report Type: 
  Country: None (occurrence: None)
  Receive Date: 20071214
  Receipt Date: 20071214
  Transmission Date: 20080405
  Serious: Yes (Hospitalization)
  Sender: FDA-Public Use
  Company Number: None

PATIENT
  Age: 65 Year
  Sex: Female
  Weight: 52.6173 kg

DRUGS (2)
  1. CETUXIMAB [Suspect]
     Indication: PANCREATIC CARCINOMA METASTATIC
     Dosage: 200MG/M2 IV WEEKLY
     Route: 042
     Dates: start: 20071018, end: 20071128
  2. TARCEVA [Suspect]
     Indication: PANCREATIC CARCINOMA METASTATIC
     Dosage: 100MG PO DAILY
     Route: 048
     Dates: start: 20071018, end: 20071128

REACTIONS (4)
  - LUNG DISORDER [None]
  - LYMPHADENOPATHY [None]
  - MALIGNANT NEOPLASM PROGRESSION [None]
  - METASTASES TO LIVER [None]
